FAERS Safety Report 4705555-5 (Version None)
Quarter: 2005Q2

REPORT INFORMATION
  Report Type: 
  Country: None (occurrence: None)
  Receive Date: 20050629
  Receipt Date: 20050207
  Transmission Date: 20051028
  Serious: Yes (Death, Life-Threatening, Other)
  Sender: FDA-Public Use
  Company Number: 200511139GDDC

PATIENT
  Age: 50 Year
  Sex: Male
  Weight: 92 kg

DRUGS (10)
  1. HEPARIN SODIUM [Suspect]
     Indication: MYOCARDIAL INFARCTION
     Dosage: ONCE IVB
     Route: 040
     Dates: start: 20050203, end: 20050203
  2. HEPARIN SODIUM [Suspect]
     Indication: MYOCARDIAL INFARCTION
     Dosage: ONCE IVB
     Route: 040
     Dates: start: 20050203, end: 20050203
  3. HEPARIN [Suspect]
     Indication: MYOCARDIAL INFARCTION
     Dosage: Q12H SC
     Route: 058
     Dates: start: 20050203, end: 20050204
  4. HEPARIN SODIUM [Suspect]
     Indication: MYOCARDIAL INFARCTION
     Dosage: CONT IVF
     Route: 042
     Dates: start: 20050203, end: 20050204
  5. RTPA SOLUTION FOR INFUSION [Suspect]
     Indication: MYOCARDIAL INFARCTION
     Dosage: 100 MG/DAY IV
     Route: 042
     Dates: start: 20050203, end: 20050203
  6. ASPIRIN [Suspect]
     Indication: MYOCARDIAL INFARCTION
     Dosage: 100 MG/DAY PO
     Route: 048
     Dates: start: 20050203, end: 20050204
  7. METOCLOPRAMIDE [Concomitant]
  8. NITROGLYCERIN [Concomitant]
  9. OMEPRAZOLE [Concomitant]
  10. ALPRAZOLAM [Concomitant]

REACTIONS (8)
  - CARDIAC FAILURE [None]
  - CORONARY ARTERY OCCLUSION [None]
  - ELECTROMECHANICAL DISSOCIATION [None]
  - HAEMOGLOBIN DECREASED [None]
  - MYOCARDIAL ISCHAEMIA [None]
  - MYOCARDIAL RUPTURE [None]
  - PROCEDURAL HYPOTENSION [None]
  - THERAPY NON-RESPONDER [None]
